FAERS Safety Report 25396309 (Version 1)
Quarter: 2025Q2

REPORT INFORMATION
  Report Type: Spontaneous
  Country: FR (occurrence: FR)
  Receive Date: 20250604
  Receipt Date: 20250604
  Transmission Date: 20250717
  Serious: Yes (Hospitalization)
  Sender: ELI LILLY AND COMPANY
  Company Number: None

PATIENT
  Age: 14 Year
  Sex: Male
  Weight: 57 kg

DRUGS (6)
  1. STRATTERA [Suspect]
     Active Substance: ATOMOXETINE HYDROCHLORIDE
     Indication: Autism spectrum disorder
     Dosage: 25 MG/J
     Route: 048
  2. LAMICTAL [Suspect]
     Active Substance: LAMOTRIGINE
     Indication: Epilepsy
     Dosage: 200 MG IN THE MORNING AND EVENING
     Route: 048
  3. TRILEPTAL [Suspect]
     Active Substance: OXCARBAZEPINE
     Indication: Epilepsy
     Dosage: 750 MG IN THE MORNING AND EVENING
     Route: 048
  4. RISPERDAL [Suspect]
     Active Substance: RISPERIDONE
     Indication: Epilepsy
     Dosage: 1.5 MG/J
     Route: 048
  5. RIVOTRIL [Suspect]
     Active Substance: CLONAZEPAM
     Indication: Epilepsy
     Dosage: 1 MG IN THE MORNING, 1 MG AT NOON, AND 2 MG IN THE EVENING
     Route: 048
  6. TRIMEPRAZINE [Suspect]
     Active Substance: TRIMEPRAZINE
     Indication: Sleep disorder
     Dosage: 10 MG/J
     Route: 048

REACTIONS (2)
  - Inappropriate antidiuretic hormone secretion [Recovered/Resolved]
  - Off label use [Unknown]

NARRATIVE: CASE EVENT DATE: 20250327
